FAERS Safety Report 9637441 (Version 2)
Quarter: 2014Q1

REPORT INFORMATION
  Report Type: Spontaneous
  Country: US (occurrence: None)
  Receive Date: 20131018
  Receipt Date: 20140128
  Transmission Date: 20141002
  Serious: Yes (Disabling, Other)
  Sender: FDA-Public Use
  Company Number: 2013P1020278

PATIENT
  Age: 74 Year
  Sex: Female
  Weight: 58.97 kg

DRUGS (1)
  1. HYDROXYCHLOROQUINE [Suspect]

REACTIONS (5)
  - Visual acuity reduced [None]
  - Photopsia [None]
  - Retinal toxicity [None]
  - Visual field defect [None]
  - Retinal disorder [None]
